FAERS Safety Report 7870883-1 (Version None)
Quarter: 2011Q4

REPORT INFORMATION
  Report Type: 
  Country: None (occurrence: None)
  Receive Date: 20111029
  Receipt Date: 20110217
  Transmission Date: 20120403
  Serious: No
  Sender: FDA-Public Use
  Company Number: US-AMGEN-USASP2011009481

PATIENT
  Age: 32 Year
  Sex: Female

DRUGS (5)
  1. PLAQUENIL [Concomitant]
     Dosage: 200 MG, UNK
  2. ORENCIA [Concomitant]
  3. PREDNISONE [Concomitant]
     Dosage: 15 MG, UNK
  4. ENBREL [Suspect]
     Indication: RHEUMATOID ARTHRITIS
     Dosage: 50 MG, QWK
     Dates: start: 20020101
  5. PRENATAL VITAMINS                  /01549301/ [Concomitant]

REACTIONS (3)
  - BLOOD PRESSURE INCREASED [None]
  - RHEUMATOID ARTHRITIS [None]
  - INFERTILITY [None]
